FAERS Safety Report 15887829 (Version 3)
Quarter: 2019Q1

REPORT INFORMATION
  Report Type: Report from Study
  Country: US (occurrence: US)
  Receive Date: 20190130
  Receipt Date: 20190226
  Transmission Date: 20190417
  Serious: Yes (Hospitalization, Other)
  Sender: FDA-Public Use
  Company Number: US-AMGEN-USASL2019012717

PATIENT
  Age: 56 Year
  Sex: Female

DRUGS (2)
  1. REPATHA [Suspect]
     Active Substance: EVOLOCUMAB
     Indication: BLOOD CHOLESTEROL ABNORMAL
  2. REPATHA [Suspect]
     Active Substance: EVOLOCUMAB
     Indication: HYPERCHOLESTEROLAEMIA
     Dosage: 420 MG, QMO
     Route: 065
     Dates: start: 20181228

REACTIONS (11)
  - Injection site bruising [Unknown]
  - Sjogren^s syndrome [Unknown]
  - Upper respiratory tract infection [Unknown]
  - Fatigue [Unknown]
  - Musculoskeletal pain [Unknown]
  - Pain in extremity [Unknown]
  - Fibromyalgia [Unknown]
  - Rash [Unknown]
  - Device issue [Unknown]
  - Swelling [Unknown]
  - Back pain [Unknown]

NARRATIVE: CASE EVENT DATE: 201901
